FAERS Safety Report 12421436 (Version 3)
Quarter: 2017Q3

REPORT INFORMATION
  Report Type: Spontaneous
  Country: CN (occurrence: CN)
  Receive Date: 20160531
  Receipt Date: 20170810
  Transmission Date: 20171127
  Serious: Yes (Death)
  Sender: FDA-Public Use
  Company Number: ALCN2016CN003859

PATIENT

DRUGS (1)
  1. FLUORESCITE [Suspect]
     Active Substance: FLUORESCEIN SODIUM
     Indication: ANGIOGRAM RETINA
     Dosage: UNK UNK, ONCE/SINGLE
     Route: 042
     Dates: start: 2016, end: 2016

REACTIONS (1)
  - Viral myocarditis [Fatal]
